APPROVED DRUG PRODUCT: ERGOCALCIFEROL
Active Ingredient: ERGOCALCIFEROL
Strength: 50,000 IU
Dosage Form/Route: CAPSULE;ORAL
Application: A204276 | Product #001 | TE Code: AA
Applicant: PURACAP PHARMACEUTICAL LLC
Approved: Dec 7, 2018 | RLD: No | RS: No | Type: RX